FAERS Safety Report 4958805-4 (Version None)
Quarter: 2006Q1

REPORT INFORMATION
  Report Type: 
  Country: None (occurrence: None)
  Receive Date: 20060127
  Receipt Date: 20050106
  Transmission Date: 20060701
  Serious: Yes (Death)
  Sender: FDA-Public Use
  Company Number: 05-01-0027

PATIENT
  Age: 40 Year
  Sex: Female
  Weight: 95.2554 kg

DRUGS (3)
  1. CLOZAPINE [Suspect]
     Indication: SCHIZOPHRENIA, UNDIFFERENTIATED TYPE
     Dosage: 150 MG BID, ORAL
     Route: 048
     Dates: start: 20031021, end: 20050105
  2. ATIVAN [Concomitant]
  3. LITHIUM CARBONATE [Concomitant]

REACTIONS (1)
  - UNEVALUABLE EVENT [None]
